APPROVED DRUG PRODUCT: TACLONEX
Active Ingredient: BETAMETHASONE DIPROPIONATE; CALCIPOTRIENE
Strength: 0.064%;0.005%
Dosage Form/Route: SUSPENSION;TOPICAL
Application: N022185 | Product #001 | TE Code: AB
Applicant: LEO PHARMA AS
Approved: May 9, 2008 | RLD: Yes | RS: Yes | Type: RX